FAERS Safety Report 6479714-8 (Version None)
Quarter: 2009Q4

REPORT INFORMATION
  Report Type: 
  Country: None (occurrence: None)
  Receive Date: 20091208
  Receipt Date: 20091201
  Transmission Date: 20100525
  Serious: Yes (Hospitalization, Other)
  Sender: FDA-Public Use
  Company Number: US-AMGEN-QUU368929

PATIENT
  Sex: Female

DRUGS (47)
  1. ARANESP [Suspect]
     Indication: RENAL FAILURE CHRONIC
     Route: 058
     Dates: start: 20060101, end: 20091009
  2. ZYVOX [Suspect]
     Dates: start: 20091002, end: 20091014
  3. METHYLPREDNISOLONE [Concomitant]
  4. VANCOMYCIN [Concomitant]
  5. PHENERGAN HCL [Concomitant]
  6. LOMOTIL [Concomitant]
  7. MULTI-VITAMINS [Concomitant]
  8. FOLIC ACID [Concomitant]
  9. VENOFER [Concomitant]
  10. LASIX [Concomitant]
  11. MICONAZOLE NITRATE [Concomitant]
  12. ZOFRAN [Concomitant]
  13. VITAMIN B-12 [Concomitant]
     Route: 030
  14. PERCOCET [Concomitant]
  15. ZOCOR [Concomitant]
  16. FLAGYL [Concomitant]
  17. LOPRESSOR [Concomitant]
  18. COZAAR [Concomitant]
     Route: 048
  19. IMDUR [Concomitant]
  20. FORMOTEROL FUMARATE [Concomitant]
  21. ZETIA [Concomitant]
  22. PROTONIX [Concomitant]
  23. COMBIVENT [Concomitant]
  24. HEPARIN [Concomitant]
  25. NOVOLOG [Concomitant]
  26. LORAZEPAM [Concomitant]
     Route: 042
     Dates: start: 20091008, end: 20091013
  27. LIDOCAINE [Concomitant]
     Dates: start: 20090829, end: 20091001
  28. NOVOLIN R [Concomitant]
  29. INSULIN [Concomitant]
  30. NORVASC [Concomitant]
  31. OS-CAL + D [Concomitant]
  32. BIMATOPROST [Concomitant]
     Route: 047
  33. REGLAN [Concomitant]
     Route: 042
  34. SODIUM BICARBONATE IN PLASTIC CONTAINER [Concomitant]
  35. PLAVIX [Concomitant]
     Dates: end: 20091001
  36. AGGRENOX [Concomitant]
     Dates: start: 20091001
  37. MAGNESIUM OXIDE [Concomitant]
  38. NYSTATIN [Concomitant]
  39. ALLBEE WITH C [Concomitant]
  40. SEROQUEL [Concomitant]
  41. PREDNISONE [Concomitant]
  42. COLACE [Concomitant]
  43. NOVOLIN 70/30 [Concomitant]
  44. IRON SULFATETHIAMIN COMPOUND TAB [Concomitant]
  45. TYLENOL (CAPLET) [Concomitant]
  46. MAALOX [Concomitant]
  47. MAGNESIUM CITRATE [Concomitant]

REACTIONS (7)
  - APLASIA PURE RED CELL [None]
  - CEREBROVASCULAR ACCIDENT [None]
  - CLOSTRIDIUM DIFFICILE COLITIS [None]
  - COLECTOMY [None]
  - ENTEROVESICAL FISTULA [None]
  - SEPSIS [None]
  - WOUND DEHISCENCE [None]
